FAERS Safety Report 10732090 (Version 1)
Quarter: 2015Q1

REPORT INFORMATION
  Report Type: Spontaneous
  Country: US (occurrence: None)
  Receive Date: 20150121
  Receipt Date: 20150121
  Transmission Date: 20150721
  Serious: No
  Sender: FDA-Public Use
  Company Number: None

PATIENT
  Age: 86 Year
  Sex: Female
  Weight: 63.5 kg

DRUGS (1)
  1. DOXYCYCLINE HYCTATE 100 MG MYLAN [Suspect]
     Active Substance: DOXYCYCLINE HYCLATE
     Indication: BRONCHITIS
     Dates: start: 20150106, end: 20150108

REACTIONS (1)
  - Insomnia [None]

NARRATIVE: CASE EVENT DATE: 20150107
